FAERS Safety Report 5974975-3 (Version None)
Quarter: 2008Q4

REPORT INFORMATION
  Report Type: 
  Country: None (occurrence: None)
  Receive Date: 20081128
  Receipt Date: 20081117
  Transmission Date: 20090506
  Serious: Yes (Other)
  Sender: FDA-Public Use
  Company Number: 20597

PATIENT
  Age: 14 Year
  Sex: Male

DRUGS (7)
  1. CYTARABINE [Suspect]
     Indication: ACUTE LYMPHOCYTIC LEUKAEMIA
  2. FLUDARABINE PHOSPHATE [Suspect]
     Indication: ACUTE LYMPHOCYTIC LEUKAEMIA
  3. METHOTREXATE [Suspect]
     Indication: ACUTE LYMPHOCYTIC LEUKAEMIA
  4. CLOFARABINE [Suspect]
     Indication: ACUTE LYMPHOCYTIC LEUKAEMIA
  5. MELPHALAN [Suspect]
     Indication: ACUTE LYMPHOCYTIC LEUKAEMIA
  6. THIOTEPA [Suspect]
     Indication: ACUTE LYMPHOCYTIC LEUKAEMIA
  7. HYDROCORTISONE [Concomitant]

REACTIONS (9)
  - AXONAL NEUROPATHY [None]
  - CARDIAC ARREST [None]
  - DISORIENTATION [None]
  - LABILE BLOOD PRESSURE [None]
  - MECHANICAL VENTILATION [None]
  - MYELOPATHY [None]
  - PROGRESSIVE MULTIFOCAL LEUKOENCEPHALOPATHY [None]
  - SUDDEN DEATH [None]
  - UNRESPONSIVE TO STIMULI [None]
